FAERS Safety Report 4608849-7 (Version None)
Quarter: 2005Q1

REPORT INFORMATION
  Report Type: 
  Country: None (occurrence: None)
  Receive Date: 20050315
  Receipt Date: 20050301
  Transmission Date: 20050727
  Serious: Yes (Other)
  Sender: FDA-Public Use
  Company Number: NL-GLAXOSMITHKLINE-B0374583A

PATIENT

DRUGS (3)
  1. ROPINIROLE HCL [Suspect]
     Route: 065
  2. LIPITOR [Concomitant]
  3. L-DOPA [Concomitant]

REACTIONS (2)
  - DELUSION [None]
  - DEVICE INTERACTION [None]
